FAERS Safety Report 13787952 (Version 1)
Quarter: 2017Q3

REPORT INFORMATION
  Report Type: Spontaneous
  Country: US (occurrence: US)
  Receive Date: 20170725
  Receipt Date: 20170725
  Transmission Date: 20171127
  Serious: No
  Sender: FDA-Public Use
  Company Number: US-JNJFOC-20170605025

PATIENT
  Age: 14 Year
  Sex: Female
  Weight: 61.24 kg

DRUGS (2)
  1. CHILDRENS MOTRIN [Suspect]
     Active Substance: IBUPROFEN
     Indication: TOOTH EXTRACTION
     Dosage: 10-15 ML, 1X EVERY 6-10 HOURS
     Route: 048
     Dates: start: 20170603
  2. CHILDRENS MOTRIN [Suspect]
     Active Substance: IBUPROFEN
     Indication: SWELLING
     Dosage: 10-15 ML, 1X EVERY 6-10 HOURS
     Route: 048
     Dates: start: 20170603

REACTIONS (2)
  - Product quality issue [Unknown]
  - Drug administered to patient of inappropriate age [Unknown]

NARRATIVE: CASE EVENT DATE: 20170603
